FAERS Safety Report 12832637 (Version 1)
Quarter: 2016Q4

REPORT INFORMATION
  Report Type: Report from Study
  Country: US (occurrence: US)
  Receive Date: 20161010
  Receipt Date: 20161010
  Transmission Date: 20170207
  Serious: Yes (Hospitalization, Other)
  Sender: FDA-Public Use
  Company Number: US-ROCHE-1215709

PATIENT
  Age: 67 Year
  Sex: Female
  Weight: 73.02 kg

DRUGS (7)
  1. PACLITAXEL. [Suspect]
     Active Substance: PACLITAXEL
     Dosage: DAY 8
     Route: 033
  2. PACLITAXEL. [Suspect]
     Active Substance: PACLITAXEL
     Dosage: CYCLE 2-6: DAY1
     Route: 042
  3. XARELTO [Suspect]
     Active Substance: RIVAROXABAN
     Indication: PRODUCT USED FOR UNKNOWN INDICATION
     Route: 065
  4. CISPLATIN. [Suspect]
     Active Substance: CISPLATIN
     Indication: MALIGNANT PERITONEAL NEOPLASM
     Dosage: ON DAY  1 AND 2,  LAST DOSE ADMINISTERD ON: 09/NOVE/2012
     Route: 033
     Dates: start: 20120705
  5. VELIPARIB [Suspect]
     Active Substance: VELIPARIB
     Indication: MALIGNANT PERITONEAL NEOPLASM
     Dosage: ON DAY 1 AND 21, LAST DOSE ADMINISTERD ON 29NOV/2013
     Route: 048
     Dates: start: 20120705
  6. PACLITAXEL. [Suspect]
     Active Substance: PACLITAXEL
     Indication: MALIGNANT PERITONEAL NEOPLASM
     Dosage: ON DAY 1,  LAST DOSE ADMINISTERD ON: 08/NOV/2012
     Route: 042
     Dates: start: 20120705
  7. BEVACIZUMAB [Suspect]
     Active Substance: BEVACIZUMAB
     Indication: MALIGNANT PERITONEAL NEOPLASM
     Dosage: OVER 30 TO 90 MIN ON DAY 1, LAST DOSE ADMINISTERD ON 31/JAN/2013
     Route: 042
     Dates: start: 20120705

REACTIONS (6)
  - Anxiety [Unknown]
  - Device dislocation [Recovered/Resolved]
  - Neutrophil count decreased [Unknown]
  - Small intestinal obstruction [Recovered/Resolved]
  - Hypophosphataemia [Unknown]
  - White blood cell count decreased [Unknown]

NARRATIVE: CASE EVENT DATE: 20120905
